FAERS Safety Report 24158617 (Version 1)
Quarter: 2024Q3

REPORT INFORMATION
  Report Type: Report from Study
  Country: IN (occurrence: IN)
  Receive Date: 20240731
  Receipt Date: 20240731
  Transmission Date: 20241017
  Serious: Yes (Other)
  Sender: ELI LILLY AND CO
  Company Number: IN-ELI_LILLY_AND_COMPANY-IN202407018033

PATIENT
  Age: 64 Year
  Sex: Female

DRUGS (8)
  1. ABEMACICLIB [Suspect]
     Active Substance: ABEMACICLIB
     Indication: Breast cancer
     Dosage: 150 MG, BID
     Route: 048
     Dates: start: 202312
  2. ABEMACICLIB [Suspect]
     Active Substance: ABEMACICLIB
     Indication: Bone cancer
     Dosage: 200 MG, DAILY
     Route: 048
  3. TAPENTADOL [Concomitant]
     Active Substance: TAPENTADOL
     Indication: Pain
  4. OPTINEURON [CALCIUM PANTOTHENATE;CYANOCOBALAM [Concomitant]
     Indication: Product used for unknown indication
  5. CELIN [ASCORBIC ACID] [Concomitant]
     Indication: Product used for unknown indication
  6. FULVESTRANT [Concomitant]
     Active Substance: FULVESTRANT
     Indication: Product used for unknown indication
  7. DENOSUMAB [Concomitant]
     Active Substance: DENOSUMAB
     Indication: Product used for unknown indication
  8. ARACHITOL [COLECALCIFEROL] [Concomitant]
     Indication: Product used for unknown indication

REACTIONS (17)
  - Haemoglobin decreased [Recovered/Resolved]
  - Trigeminal neuralgia [Unknown]
  - Dysuria [Unknown]
  - Bilirubin conjugated abnormal [Unknown]
  - Back pain [Unknown]
  - Blood sodium decreased [Unknown]
  - Blood chloride increased [Unknown]
  - Globulin abnormal [Unknown]
  - Blood bilirubin abnormal [Unknown]
  - Protein total abnormal [Unknown]
  - Blood calcium abnormal [Unknown]
  - Alanine aminotransferase abnormal [Unknown]
  - Aspartate aminotransferase abnormal [Unknown]
  - Blood alkaline phosphatase abnormal [Unknown]
  - Blood albumin abnormal [Unknown]
  - Platelet count decreased [Recovered/Resolved]
  - Asthenia [Unknown]

NARRATIVE: CASE EVENT DATE: 20240301
